FAERS Safety Report 5218520-9 (Version None)
Quarter: 2007Q1

REPORT INFORMATION
  Report Type: 
  Country: None (occurrence: None)
  Receive Date: 20061130
  Receipt Date: 20060927
  Transmission Date: 20070707
  Serious: Yes (Other)
  Sender: FDA-Public Use
  Company Number: US200606002403

PATIENT
  Age: 45 Year
  Sex: Female
  Weight: 50.8 kg

DRUGS (2)
  1. ZYPREXA [Suspect]
     Indication: BIPOLAR DISORDER
     Dosage: SEE IMAGE
     Dates: start: 19990101
  2. ZYPREXA [Suspect]
     Indication: BIPOLAR DISORDER
     Dosage: SEE IMAGE
     Dates: start: 20020101

REACTIONS (2)
  - DIABETES MELLITUS [None]
  - DIABETIC KETOACIDOSIS [None]
